FAERS Safety Report 13702364 (Version 1)
Quarter: 2017Q2

REPORT INFORMATION
  Report Type: Spontaneous
  Country: US (occurrence: US)
  Receive Date: 20170629
  Receipt Date: 20170629
  Transmission Date: 20170830
  Serious: No
  Sender: FDA-Public Use
  Company Number: US-IPSEN BIOPHARMACEUTICALS, INC.-2015-6523

PATIENT
  Age: 2 Year
  Sex: Male
  Weight: 9 kg

DRUGS (4)
  1. INCRELEX [Suspect]
     Active Substance: MECASERMIN
     Indication: PRODUCT USE IN UNAPPROVED INDICATION
     Route: 058
     Dates: start: 20150723
  2. INCRELEX [Suspect]
     Active Substance: MECASERMIN
     Indication: CONGENITAL DISORDER OF GLYCOSYLATION
     Route: 058
     Dates: start: 20150623, end: 20150708
  3. LEVOTHYROXINE. [Concomitant]
     Active Substance: LEVOTHYROXINE
     Route: 065
     Dates: start: 20150719
  4. LEVOTHYROXINE. [Concomitant]
     Active Substance: LEVOTHYROXINE
     Indication: PRODUCT USED FOR UNKNOWN INDICATION
     Route: 065

REACTIONS (9)
  - Screaming [None]
  - Regurgitation [None]
  - Hyperhidrosis [None]
  - Unresponsive to stimuli [None]
  - Somnolence [None]
  - Eye swelling [None]
  - Crying [None]
  - Discomfort [None]
  - Eyelid ptosis [None]

NARRATIVE: CASE EVENT DATE: 20150708
